FAERS Safety Report 5812483-0 (Version None)
Quarter: 2008Q3

REPORT INFORMATION
  Report Type: 
  Country: None (occurrence: None)
  Receive Date: 20080715
  Receipt Date: 20080715
  Transmission Date: 20090109
  Serious: Yes (Hospitalization)
  Sender: FDA-Public Use
  Company Number: None

PATIENT
  Age: 75 Year
  Sex: Female

DRUGS (1)
  1. LEVAQUIN [Suspect]
     Dates: start: 20061012

REACTIONS (5)
  - APHASIA [None]
  - INSOMNIA [None]
  - LIP SWELLING [None]
  - RESTLESSNESS [None]
  - SWOLLEN TONGUE [None]
